FAERS Safety Report 17389983 (Version 1)
Quarter: 2020Q1

REPORT INFORMATION
  Report Type: Spontaneous
  Country: US (occurrence: US)
  Receive Date: 20200207
  Receipt Date: 20200207
  Transmission Date: 20200409
  Serious: No
  Sender: FDA-Public Use
  Company Number: US-VERTEX PHARMACEUTICALS-2020-001922

PATIENT
  Sex: Female

DRUGS (10)
  1. FAMOTIDINE. [Concomitant]
     Active Substance: FAMOTIDINE
  2. CLOBETASOL [Concomitant]
     Active Substance: CLOBETASOL
  3. ALBUTEROL [SALBUTAMOL] [Concomitant]
     Active Substance: ALBUTEROL
  4. CIPROFLOXACIN. [Concomitant]
     Active Substance: CIPROFLOXACIN
  5. SODIUM CHLORIDE. [Concomitant]
     Active Substance: SODIUM CHLORIDE
  6. TRIKAFTA [Suspect]
     Active Substance: ELEXACAFTOR\IVACAFTOR\TEZACAFTOR
     Indication: CYSTIC FIBROSIS
     Dosage: 2 TAB (100 MG ELEXACAFTOR/50 MG TEZACAFTOR/ 75 MG IVACAFTOR) AM AND 1 TAB (150 MG IVACAFTOR) PM
     Route: 048
     Dates: start: 20191230, end: 20200128
  7. PULMOZYME [Concomitant]
     Active Substance: DORNASE ALFA
  8. CREON [Concomitant]
     Active Substance: PANCRELIPASE AMYLASE\PANCRELIPASE LIPASE\PANCRELIPASE PROTEASE
  9. BANOPHEN [Concomitant]
     Active Substance: DIPHENHYDRAMINE HYDROCHLORIDE
  10. DEXAMETHASONE. [Concomitant]
     Active Substance: DEXAMETHASONE

REACTIONS (1)
  - Rash [Unknown]
